FAERS Safety Report 18918934 (Version 5)
Quarter: 2024Q4

REPORT INFORMATION
  Report Type: Spontaneous
  Country: IT (occurrence: IT)
  Receive Date: 20210220
  Receipt Date: 20241227
  Transmission Date: 20250115
  Serious: Yes (Death, Hospitalization, Other)
  Sender: TAKEDA
  Company Number: IT-TAKEDA-2021TUS010414

PATIENT
  Age: 51 Year
  Sex: Male

DRUGS (13)
  1. HUMAN IMMUNOGLOBULIN G [Suspect]
     Active Substance: HUMAN IMMUNOGLOBULIN G
     Indication: COVID-19
     Dosage: 30 GRAM
  2. DEXAMETHASONE [Suspect]
     Active Substance: DEXAMETHASONE
     Indication: COVID-19
     Dosage: 6 MILLIGRAM
  3. PREDNISOLONE [Suspect]
     Active Substance: PREDNISOLONE
     Indication: COVID-19
     Dosage: UNK
  4. PIPERACILLIN AND TAZOBACTAM [Suspect]
     Active Substance: PIPERACILLIN SODIUM\TAZOBACTAM SODIUM
     Indication: Antibiotic therapy
     Dosage: UNK
  5. OXYGEN [Suspect]
     Active Substance: OXYGEN
     Indication: Hypercapnia
     Dosage: UNK
  6. OXYGEN [Suspect]
     Active Substance: OXYGEN
     Indication: Hypoxia
  7. AZITHROMYCIN DIHYDRATE [Suspect]
     Active Substance: AZITHROMYCIN DIHYDRATE
     Indication: COVID-19
     Dosage: 500 MILLIGRAM, QD
  8. AZITHROMYCIN DIHYDRATE [Suspect]
     Active Substance: AZITHROMYCIN DIHYDRATE
     Indication: Off label use
  9. LINEZOLID [Suspect]
     Active Substance: LINEZOLID
     Indication: Antibiotic therapy
     Dosage: UNK
  10. LEVOFLOXACIN [Suspect]
     Active Substance: LEVOFLOXACIN
     Indication: Antibiotic therapy
     Dosage: UNK
  11. ENOXAPARIN [Suspect]
     Active Substance: ENOXAPARIN
     Indication: COVID-19
     Dosage: 6000 INTERNATIONAL UNIT, QD
  12. ENOXAPARIN [Suspect]
     Active Substance: ENOXAPARIN
     Indication: Antibiotic therapy
     Dosage: UNK UNK, QD
  13. HUMAN IMMUNOGLOBULIN G [Concomitant]
     Active Substance: HUMAN IMMUNOGLOBULIN G
     Indication: Good syndrome
     Dosage: UNK

REACTIONS (10)
  - COVID-19 [Fatal]
  - Dyspnoea [Unknown]
  - Hypoxia [Unknown]
  - Respiratory alkalosis [Unknown]
  - Hypocapnia [Unknown]
  - Off label use [Unknown]
  - Respiratory distress [Fatal]
  - Drug ineffective for unapproved indication [Unknown]
  - Product use issue [Unknown]
  - Product use in unapproved indication [Unknown]
